FAERS Safety Report 9699993 (Version 2)
Quarter: 2014Q2

REPORT INFORMATION
  Report Type: Spontaneous
  Country: US (occurrence: US)
  Receive Date: 20131121
  Receipt Date: 20140611
  Transmission Date: 20141212
  Serious: No
  Sender: FDA-Public Use
  Company Number: US-BIOGENIDEC-2013BI109429

PATIENT
  Sex: Female

DRUGS (12)
  1. TYSABRI [Suspect]
     Indication: MULTIPLE SCLEROSIS
     Route: 042
     Dates: start: 20071129, end: 20100623
  2. TYSABRI [Suspect]
     Indication: MULTIPLE SCLEROSIS
     Route: 042
     Dates: start: 20071129
  3. SYNTHROID [Concomitant]
  4. SIMVASTATIN [Concomitant]
  5. SPIRONOLACTONE [Concomitant]
  6. TRAZADONE [Concomitant]
  7. FLUTICASONE [Concomitant]
  8. VESICARE [Concomitant]
  9. CLARITIN [Concomitant]
  10. ADVIL [Concomitant]
  11. TIZANIDINE [Concomitant]
  12. BETASERON [Concomitant]

REACTIONS (4)
  - Muscle spasticity [Unknown]
  - Seasonal allergy [Unknown]
  - Drug hypersensitivity [Unknown]
  - Fatigue [Not Recovered/Not Resolved]
